FAERS Safety Report 18178689 (Version 5)
Quarter: 2021Q1

REPORT INFORMATION
  Report Type: Other
  Country: CH (occurrence: CH)
  Receive Date: 20200821
  Receipt Date: 20210325
  Transmission Date: 20210419
  Serious: Yes (Death, Hospitalization, Other)
  Sender: FDA-Public Use
  Company Number: CH-ROCHE-2662123

PATIENT
  Age: 76 Year
  Sex: Male
  Weight: 86 kg

DRUGS (5)
  1. POLATUZUMAB VEDOTIN. [Suspect]
     Active Substance: POLATUZUMAB VEDOTIN
     Indication: DIFFUSE LARGE B-CELL LYMPHOMA RECURRENT
     Route: 042
     Dates: start: 20200604, end: 20200604
  2. TAVEGYL [Concomitant]
     Active Substance: CLEMASTINE FUMARATE
     Dosage: DAY 1 (D1) = DAY 2 (D2)
     Route: 042
     Dates: start: 20200603, end: 20200604
  3. RIBOMUSTIN [Concomitant]
     Active Substance: BENDAMUSTINE HYDROCHLORIDE
     Indication: DIFFUSE LARGE B-CELL LYMPHOMA RECURRENT
     Dosage: DAY 1 (D1) + DAY 2 (D2)
     Route: 042
     Dates: start: 20200603, end: 20200604
  4. DEXAMETHASONE. [Concomitant]
     Active Substance: DEXAMETHASONE
     Dosage: DAY 1 (D1) = DAY 2 (D2)
     Route: 042
     Dates: start: 20200603, end: 20200604
  5. MABTHERA [Concomitant]
     Active Substance: RITUXIMAB
     Indication: DIFFUSE LARGE B-CELL LYMPHOMA RECURRENT
     Dosage: ON DAY 1
     Route: 042
     Dates: start: 20200603, end: 20200603

REACTIONS (4)
  - Agranulocytosis [Unknown]
  - Lung infiltration [Not Recovered/Not Resolved]
  - COVID-19 [Fatal]
  - Organising pneumonia [Unknown]

NARRATIVE: CASE EVENT DATE: 20200606
